FAERS Safety Report 19783633 (Version 1)
Quarter: 2021Q3

REPORT INFORMATION
  Report Type: Report from Study
  Country: IN (occurrence: IN)
  Receive Date: 20210903
  Receipt Date: 20210903
  Transmission Date: 20211014
  Serious: Yes (Death, Other)
  Sender: FDA-Public Use
  Company Number: IN-BRISTOL-MYERS SQUIBB COMPANY-BMS-2021-067388

PATIENT
  Age: 72 Year
  Sex: Male
  Weight: 78 kg

DRUGS (2)
  1. NIVOLUMAB [Suspect]
     Active Substance: NIVOLUMAB
     Indication: TRANSITIONAL CELL CARCINOMA
     Dosage: 234 MILLIGRAM, Q2WK
     Route: 042
     Dates: start: 20200929
  2. NIVOLUMAB [Suspect]
     Active Substance: NIVOLUMAB
     Dosage: 210 MG Q2WK
     Route: 042

REACTIONS (3)
  - Prescribed underdose [Unknown]
  - Sepsis [Fatal]
  - Urinary tract infection [Unknown]
